FAERS Safety Report 6232929-6 (Version None)
Quarter: 2009Q2

REPORT INFORMATION
  Report Type: 
  Country: None (occurrence: None)
  Receive Date: 20090612
  Receipt Date: 20090529
  Transmission Date: 20091009
  Serious: Yes (Other)
  Sender: FDA-Public Use
  Company Number: SPV1-2009-01095

PATIENT
  Sex: Male
  Weight: 44.4 kg

DRUGS (11)
  1. PENTASA [Suspect]
     Indication: CROHN'S DISEASE
     Dosage: 1750 MG DAILY VIA G-TUBE
  2. CARAFATE [Concomitant]
  3. COLACE (DOCUSATE SODIUM) [Concomitant]
  4. CALCIUM (CALCIUM) [Concomitant]
  5. DALLERGY (CHLORPHENAMINE MALEATE, HYOSCINE METHONITRATE, PHENYLEPHRIE [Concomitant]
  6. MIRALAX [Concomitant]
  7. SINGULAIR /01362602/ (MONTELUKAST SODIUM) [Concomitant]
  8. PEPCID /00706001/ (FAMOTIDINE) [Concomitant]
  9. BENTYL [Concomitant]
  10. ATIVAN [Concomitant]
  11. PREVACID [Concomitant]

REACTIONS (5)
  - FEEDING TUBE COMPLICATION [None]
  - MEDICATION RESIDUE [None]
  - NAUSEA [None]
  - OFF LABEL USE [None]
  - VOMITING [None]
